FAERS Safety Report 14385927 (Version 1)
Quarter: 2018Q1

REPORT INFORMATION
  Report Type: Report from Study
  Country: None (occurrence: PR)
  Receive Date: 20180115
  Receipt Date: 20180115
  Transmission Date: 20180509
  Serious: Yes (Hospitalization)
  Sender: FDA-Public Use
  Company Number: PR-ABBVIE-18K-131-2222305-00

PATIENT
  Sex: Female

DRUGS (1)
  1. HUMIRA [Suspect]
     Active Substance: ADALIMUMAB
     Indication: ANKYLOSING SPONDYLITIS
     Route: 058
     Dates: start: 20170721, end: 20171219

REACTIONS (9)
  - Tremor [Unknown]
  - Dark circles under eyes [Unknown]
  - Swelling [Unknown]
  - Pain [Unknown]
  - Disorientation [Unknown]
  - Palpitations [Unknown]
  - Vision blurred [Unknown]
  - Capillary fragility [Unknown]
  - Haematoma [Unknown]
